FAERS Safety Report 7637361-6 (Version None)
Quarter: 2011Q3

REPORT INFORMATION
  Report Type: 
  Country: None (occurrence: None)
  Receive Date: 20110726
  Receipt Date: 20110718
  Transmission Date: 20111222
  Serious: No
  Sender: FDA-Public Use
  Company Number: US-PFIZER INC-2011128832

PATIENT
  Sex: Female
  Weight: 54.422 kg

DRUGS (12)
  1. SUTENT [Suspect]
     Dosage: 50 MG, 1 CAPSULE EVERY DAY FOR 28 DAYS, REPEAT EVERY 6 WEEKS
     Route: 048
  2. LORAZEPAM [Concomitant]
     Dosage: 1 MG, UNK
  3. PHENOBARB [Concomitant]
     Dosage: 30 MG, UNK
  4. OXYBUTYNIN [Concomitant]
     Dosage: 5 MG, UNK
  5. RANITIDINE [Concomitant]
     Dosage: 150 MG, UNK
  6. ACETYLSALICYLIC ACID [Concomitant]
     Dosage: 81 MG, UNK
  7. BENTYL [Concomitant]
     Dosage: 20 MG, UNK
  8. CITRACAL + D [Concomitant]
     Dosage: UNK
  9. VALSARTAN [Concomitant]
     Dosage: 40 MG, UNK
  10. NEXIUM [Concomitant]
     Dosage: 40 MG, UNK
  11. AMLODIPINE [Concomitant]
     Dosage: 5 MG, UNK
  12. IMODIUM MULTI-SYMPTOM RELIEF [Concomitant]
     Dosage: 2 MG, UNK

REACTIONS (5)
  - DIARRHOEA [None]
  - PRURITUS [None]
  - ERYTHEMA [None]
  - NAUSEA [None]
  - ORAL DISCOMFORT [None]
